FAERS Safety Report 8801162 (Version 2)
Quarter: 2012Q4

REPORT INFORMATION
  Report Type: 
  Country: US (occurrence: US)
  Receive Date: 20120921
  Receipt Date: 20121001
  Transmission Date: 20130627
  Serious: No
  Sender: FDA-Public Use
  Company Number: US-TEVA-359926USA

PATIENT
  Age: 85 Year
  Sex: Male
  Weight: 79 kg

DRUGS (16)
  1. QVAR [Suspect]
     Indication: ASTHMA
     Dosage: 2 puffs daily
     Dates: start: 20120830
  2. ALBUTEROL [Concomitant]
  3. HYDROCORTISONE [Concomitant]
  4. THEOPHYLLINE [Concomitant]
     Dosage: 600 Milligram Daily;
  5. DOXAZOSIN MESYLATE [Concomitant]
  6. VERAPAMIL [Concomitant]
  7. LASIX [Concomitant]
  8. ACARBOSE [Concomitant]
  9. GLIMEPIRIDE [Concomitant]
  10. LISINOPRIL [Concomitant]
  11. PRAZOSIN [Concomitant]
  12. POTASSIUM CHLORIDE [Concomitant]
  13. PLAVIX [Concomitant]
  14. SIMVASTATIN [Concomitant]
  15. ATIVAN [Concomitant]
     Dosage: 1.5 Milligram Daily;
  16. ASPIRIN [Concomitant]

REACTIONS (3)
  - Pulmonary congestion [Recovered/Resolved]
  - Cough [Recovered/Resolved]
  - Drug ineffective [Recovered/Resolved]
